FAERS Safety Report 9337867 (Version 3)
Quarter: 2013Q2

REPORT INFORMATION
  Report Type: Spontaneous
  Country: JP (occurrence: JP)
  Receive Date: 20130608
  Receipt Date: 20130628
  Transmission Date: 20140414
  Serious: Yes (Death, Hospitalization)
  Sender: FDA-Public Use
  Company Number: JP-ROCHE-1233912

PATIENT
  Age: 73 Year
  Sex: Male
  Weight: 52 kg

DRUGS (8)
  1. XELODA [Suspect]
     Indication: METASTATIC GASTRIC CANCER
     Dosage: IT IS ADMINISTER/ONE WEEKLY HOLIDAY MEDICINE FOR TWO WEEKS.
     Route: 048
     Dates: start: 20130305, end: 20130415
  2. CISPLATIN [Suspect]
     Indication: METASTATIC GASTRIC CANCER
     Route: 041
     Dates: start: 20130305, end: 20130410
  3. NEU-UP (JAPAN) [Suspect]
     Indication: NEUTROPHIL COUNT DECREASED
     Route: 042
     Dates: start: 20130420, end: 20130426
  4. OXYCONTIN [Concomitant]
     Indication: METASTATIC GASTRIC CANCER
     Route: 048
     Dates: start: 20130304, end: 20130416
  5. EMEND [Concomitant]
     Indication: PROPHYLAXIS
     Route: 048
     Dates: start: 20130305, end: 20130410
  6. EMEND [Concomitant]
     Indication: PROPHYLAXIS
     Route: 048
     Dates: start: 20130306, end: 20130412
  7. DECADRON [Concomitant]
     Indication: PROPHYLAXIS
     Route: 048
     Dates: start: 20130306, end: 20130413
  8. NITRODERM TTS [Concomitant]
     Indication: HYPERTENSION
     Route: 061
     Dates: start: 20130327, end: 20130416

REACTIONS (3)
  - Acute respiratory distress syndrome [Fatal]
  - Sepsis [Recovered/Resolved]
  - Neutropenia [Recovered/Resolved]
